FAERS Safety Report 7791920-9 (Version None)
Quarter: 2011Q4

REPORT INFORMATION
  Report Type: 
  Country: None (occurrence: None)
  Receive Date: 20111003
  Receipt Date: 20110930
  Transmission Date: 20120403
  Serious: Yes (Other)
  Sender: FDA-Public Use
  Company Number: US-PFIZER INC-2011234323

PATIENT
  Sex: Female
  Weight: 104 kg

DRUGS (5)
  1. ZOLOFT [Suspect]
     Dosage: 100 MG, ONE AND HALF TABLET DAILY
     Route: 048
  2. INSULIN [Concomitant]
     Indication: DIABETES MELLITUS
     Dosage: 80 IU, DAILY
  3. JANUVIA [Concomitant]
     Indication: DIABETES MELLITUS
     Dosage: 100 MG, 1X/DAY
  4. LOPRESSOR [Concomitant]
     Indication: HYPERTENSION
     Dosage: 75 MG, 2X/DAY
  5. ZOLOFT [Suspect]
     Indication: DEPRESSION
     Dosage: 50 MG, DAILY
     Route: 048

REACTIONS (1)
  - HERNIA REPAIR [None]
